FAERS Safety Report 21821885 (Version 12)
Quarter: 2024Q1

REPORT INFORMATION
  Report Type: Spontaneous
  Country: PE (occurrence: PE)
  Receive Date: 20230105
  Receipt Date: 20240124
  Transmission Date: 20240409
  Serious: Yes (Hospitalization, Other)
  Sender: FDA-Public Use
  Company Number: PE-PFIZER INC-PV202300000273

PATIENT
  Age: 54 Year
  Sex: Female

DRUGS (1)
  1. ENBREL [Suspect]
     Active Substance: ETANERCEPT
     Indication: Product used for unknown indication
     Dosage: UNK
     Route: 065

REACTIONS (11)
  - Gastric infection [Unknown]
  - Gait inability [Unknown]
  - Depressed mood [Unknown]
  - Swelling [Unknown]
  - Arthralgia [Unknown]
  - Decreased immune responsiveness [Unknown]
  - Hand deformity [Unknown]
  - Malaise [Unknown]
  - Deformity [Unknown]
  - Pain [Unknown]
  - Weight increased [Unknown]
